FAERS Safety Report 7388784-4 (Version None)
Quarter: 2011Q1

REPORT INFORMATION
  Report Type: 
  Country: None (occurrence: None)
  Receive Date: 20110331
  Receipt Date: 20110331
  Transmission Date: 20110831
  Serious: No
  Sender: FDA-Public Use
  Company Number: None

PATIENT
  Sex: Female
  Weight: 22.6799 kg

DRUGS (1)
  1. ALCOHOL PREP PADS ISOPROPYL ALCOHOL USP 70% MANUFACTURED FOR PSS WORLD [Suspect]
     Indication: PRECOCIOUS PUBERTY
     Dosage: 15 MG Q4WKS IM
     Route: 030
     Dates: start: 20110124

REACTIONS (2)
  - INJECTION SITE INDURATION [None]
  - INJECTION SITE INFECTION [None]
